FAERS Safety Report 24620404 (Version 4)
Quarter: 2025Q3

REPORT INFORMATION
  Report Type: Spontaneous
  Country: JP (occurrence: JP)
  Receive Date: 20241114
  Receipt Date: 20250802
  Transmission Date: 20251021
  Serious: Yes (Life-Threatening, Other)
  Sender: ALEXION PHARMACEUTICALS
  Company Number: JP-ASTRAZENECA-240086321_064320_P_1

PATIENT
  Age: 53 Year
  Sex: Male
  Weight: 63 kg

DRUGS (38)
  1. ONDEXXYA [Suspect]
     Active Substance: ANDEXANET ALFA
     Indication: Subdural haematoma
     Dates: start: 20240813, end: 20240813
  2. SEVOFLURANE [Concomitant]
     Active Substance: SEVOFLURANE
     Dates: start: 20240813, end: 20240813
  3. SEVOFLURANE [Concomitant]
     Active Substance: SEVOFLURANE
     Dosage: 45 MILLILITER, QD
     Dates: start: 20240814, end: 20240814
  4. PROPOFOL [Concomitant]
     Active Substance: PROPOFOL
     Indication: Subarachnoid haemorrhage
     Dosage: DOSE UNKNOWN
     Dates: start: 20240813
  5. FENTANYL [Concomitant]
     Active Substance: FENTANYL
     Indication: Subarachnoid haemorrhage
     Dates: start: 20240813
  6. ROCURONIUM BROMIDE [Concomitant]
     Active Substance: ROCURONIUM BROMIDE
     Indication: Subarachnoid haemorrhage
     Dates: start: 20240813, end: 20240814
  7. REMIFENTANIL [Concomitant]
     Active Substance: REMIFENTANIL
     Indication: Subarachnoid haemorrhage
     Dates: start: 20240813, end: 20240813
  8. CEFAZOLIN SODIUM [Concomitant]
     Active Substance: CEFAZOLIN SODIUM
     Indication: Subarachnoid haemorrhage
     Dosage: 1 GRAM, TID
     Dates: start: 20240813
  9. CEFAZOLIN SODIUM [Concomitant]
     Active Substance: CEFAZOLIN SODIUM
     Dosage: 1 GRAM, QD
     Dates: start: 20240813, end: 20240813
  10. FYCOMPA [Concomitant]
     Active Substance: PERAMPANEL
     Indication: Subarachnoid haemorrhage
     Dates: start: 20240814, end: 20240823
  11. VIMPAT [Concomitant]
     Active Substance: LACOSAMIDE
     Indication: Subarachnoid haemorrhage
     Dates: start: 20240821, end: 20240823
  12. FOSPHENYTOIN SODIUM [Concomitant]
     Active Substance: FOSPHENYTOIN SODIUM
     Indication: Subarachnoid haemorrhage
     Dates: start: 20240813, end: 20240813
  13. FOSPHENYTOIN SODIUM [Concomitant]
     Active Substance: FOSPHENYTOIN SODIUM
     Dosage: 325 MILLIGRAM, QD
     Dates: start: 20240814, end: 20240814
  14. NICARDIPINE HYDROCHLORIDE [Concomitant]
     Active Substance: NICARDIPINE HYDROCHLORIDE
     Indication: Subarachnoid haemorrhage
     Dates: start: 20240813
  15. GASTER [Concomitant]
     Active Substance: FAMOTIDINE
     Indication: Subarachnoid haemorrhage
     Dates: start: 20240813, end: 20240813
  16. HEPARIN CALCIUM [Concomitant]
     Active Substance: HEPARIN CALCIUM
     Indication: Subarachnoid haemorrhage
     Route: 065
  17. HEPARIN CALCIUM [Concomitant]
     Active Substance: HEPARIN CALCIUM
     Dosage: 3000 INTERNATIONAL UNIT, QD
     Dates: start: 20240814, end: 20240814
  18. SYMPROIC [Concomitant]
     Active Substance: NALDEMEDINE TOSYLATE
  19. SYMPROIC [Concomitant]
     Active Substance: NALDEMEDINE TOSYLATE
  20. SYMPROIC [Concomitant]
     Active Substance: NALDEMEDINE TOSYLATE
  21. AMLODIPINE [Concomitant]
     Active Substance: AMLODIPINE BESYLATE
  22. AMLODIPINE [Concomitant]
     Active Substance: AMLODIPINE BESYLATE
  23. AMLODIPINE [Concomitant]
     Active Substance: AMLODIPINE BESYLATE
  24. LOXOPROFEN [Concomitant]
     Active Substance: LOXOPROFEN
  25. LOXOPROFEN [Concomitant]
     Active Substance: LOXOPROFEN
  26. LOXOPROFEN [Concomitant]
     Active Substance: LOXOPROFEN
  27. VONOPRAZAN FUMARATE [Concomitant]
     Active Substance: VONOPRAZAN FUMARATE
  28. VONOPRAZAN FUMARATE [Concomitant]
     Active Substance: VONOPRAZAN FUMARATE
  29. VONOPRAZAN FUMARATE [Concomitant]
     Active Substance: VONOPRAZAN FUMARATE
  30. EDOXABAN TOSYLATE [Concomitant]
     Active Substance: EDOXABAN TOSYLATE
     Indication: Embolism arterial
  31. EDOXABAN TOSYLATE [Concomitant]
     Active Substance: EDOXABAN TOSYLATE
  32. EDOXABAN TOSYLATE [Concomitant]
     Active Substance: EDOXABAN TOSYLATE
  33. MAGNESIUM OXIDE [Concomitant]
     Active Substance: MAGNESIUM OXIDE
  34. MAGNESIUM OXIDE [Concomitant]
     Active Substance: MAGNESIUM OXIDE
  35. MAGNESIUM OXIDE [Concomitant]
     Active Substance: MAGNESIUM OXIDE
  36. OLMESARTAN [Concomitant]
     Active Substance: OLMESARTAN
  37. OLMESARTAN [Concomitant]
     Active Substance: OLMESARTAN
  38. OLMESARTAN [Concomitant]
     Active Substance: OLMESARTAN

REACTIONS (6)
  - Metastases to liver [Unknown]
  - Metastases to peritoneum [Unknown]
  - Coagulopathy [Not Recovered/Not Resolved]
  - Subileus [Not Recovered/Not Resolved]
  - Anaemia [Unknown]
  - Blood albumin decreased [Unknown]

NARRATIVE: CASE EVENT DATE: 20240815
